FAERS Safety Report 6860920-5 (Version None)
Quarter: 2010Q3

REPORT INFORMATION
  Report Type: 
  Country: None (occurrence: None)
  Receive Date: 20100715
  Receipt Date: 20100702
  Transmission Date: 20110219
  Serious: Yes (Hospitalization)
  Sender: FDA-Public Use
  Company Number: 7009203

PATIENT
  Age: 58 Year
  Sex: Female

DRUGS (1)
  1. REBIF [Suspect]
     Indication: PRODUCT USED FOR UNKNOWN INDICATION
     Dosage: 8.8 MCG, 3 IN 1 WK, SUBCUTANEOUS
     Route: 058
     Dates: start: 20100618

REACTIONS (9)
  - COLONOSCOPY ABNORMAL [None]
  - CONSTIPATION [None]
  - FAECES HARD [None]
  - HAEMORRHOIDS [None]
  - INJECTION SITE ERYTHEMA [None]
  - POLYP [None]
  - ULCER [None]
  - URINARY BLADDER HAEMORRHAGE [None]
  - WOUND [None]
